FAERS Safety Report 6186082-8 (Version None)
Quarter: 2009Q2

REPORT INFORMATION
  Report Type: 
  Country: None (occurrence: None)
  Receive Date: 20090511
  Receipt Date: 20090429
  Transmission Date: 20091009
  Serious: Yes (Congenital Anomaly)
  Sender: FDA-Public Use
  Company Number: HR-NOVOPROD-286573

PATIENT
  Sex: Male
  Weight: 3.89 kg

DRUGS (6)
  1. LEVEMIR [Suspect]
     Indication: TYPE 1 DIABETES MELLITUS
     Dosage: 20 IU, QD
     Route: 064
     Dates: start: 20080823
  2. LEVEMIR [Suspect]
     Dosage: 30 IU, QD
     Route: 064
     Dates: start: 20080915, end: 20090316
  3. LEVEMIR [Suspect]
     Dosage: 8 IU, QD
     Route: 064
     Dates: start: 20090317
  4. NOVOLOG [Suspect]
     Indication: TYPE 1 DIABETES MELLITUS
     Dosage: 30 IU, QD
     Route: 064
     Dates: start: 20080823, end: 20090316
  5. NOVOLOG [Suspect]
     Dosage: 28 IU, QD
     Route: 064
     Dates: start: 20090317
  6. TRANDOLAPRIL [Concomitant]
     Indication: HYPERTENSION
     Dosage: .5 MG, QD
     Route: 064
     Dates: end: 20080825

REACTIONS (1)
  - POLYDACTYLY [None]
